FAERS Safety Report 4819659-X (Version None)
Quarter: 2005Q4

REPORT INFORMATION
  Report Type: 
  Country: None (occurrence: None)
  Receive Date: 20051102
  Receipt Date: 20051102
  Transmission Date: 20060501
  Serious: Yes (Life-Threatening, Hospitalization)
  Sender: FDA-Public Use
  Company Number: None

PATIENT
  Age: 70 Year
  Sex: Male
  Weight: 104.3 kg

DRUGS (1)
  1. ROSIGLITAZONE [Suspect]
     Indication: DIABETES MELLITUS
     Dosage: 8 MG QD
     Dates: start: 20030806, end: 20050814

REACTIONS (5)
  - ANGIONEUROTIC OEDEMA [None]
  - DISORIENTATION [None]
  - PNEUMONIA [None]
  - SEPSIS [None]
  - SWOLLEN TONGUE [None]
